FAERS Safety Report 13752284 (Version 1)
Quarter: 2017Q3

REPORT INFORMATION
  Report Type: Spontaneous
  Country: US (occurrence: US)
  Receive Date: 20170713
  Receipt Date: 20170713
  Transmission Date: 20171127
  Serious: No
  Sender: FDA-Public Use
  Company Number: US-JAZZ-2017-US-005973

PATIENT
  Age: 44 Year
  Sex: Female

DRUGS (35)
  1. CARAFATE [Concomitant]
     Active Substance: SUCRALFATE
  2. NAMENDA [Concomitant]
     Active Substance: MEMANTINE HYDROCHLORIDE
  3. JANUVIA [Concomitant]
     Active Substance: SITAGLIPTIN PHOSPHATE
  4. MEDROL [Concomitant]
     Active Substance: METHYLPREDNISOLONE
  5. PROVIGIL [Concomitant]
     Active Substance: MODAFINIL
  6. XYREM [Suspect]
     Active Substance: SODIUM OXYBATE
     Indication: NARCOLEPSY
     Dosage: 2.25 G, BID
     Route: 048
     Dates: start: 200802, end: 200803
  7. NUVIGIL [Concomitant]
     Active Substance: ARMODAFINIL
  8. AMITIZA [Concomitant]
     Active Substance: LUBIPROSTONE
  9. LIPITOR [Concomitant]
     Active Substance: ATORVASTATIN CALCIUM
  10. METOCLOPRAMIDE. [Concomitant]
     Active Substance: METOCLOPRAMIDE
  11. SUMATRIPTAN SUCCINATE. [Concomitant]
     Active Substance: SUMATRIPTAN SUCCINATE
  12. MELOXICAM. [Concomitant]
     Active Substance: MELOXICAM
  13. ADVIL (MEFENAMIC ACID) [Concomitant]
     Active Substance: MEFENAMIC ACID
  14. ONDANSETRON HCL [Concomitant]
     Active Substance: ONDANSETRON HYDROCHLORIDE
  15. ALBUTEROL SULFATE. [Concomitant]
     Active Substance: ALBUTEROL SULFATE
  16. CYMBALTA [Concomitant]
     Active Substance: DULOXETINE HYDROCHLORIDE
  17. VIMOVO [Concomitant]
     Active Substance: ESOMEPRAZOLE MAGNESIUM\NAPROXEN
  18. PRAVASTATIN. [Concomitant]
     Active Substance: PRAVASTATIN
  19. ULTRAM [Concomitant]
     Active Substance: TRAMADOL HYDROCHLORIDE
  20. XYREM [Suspect]
     Active Substance: SODIUM OXYBATE
     Dosage: 4.5 G, BID
     Route: 048
     Dates: start: 200803
  21. FERROUS SULFATE. [Concomitant]
     Active Substance: FERROUS SULFATE
  22. VITAMIN D                          /00107901/ [Concomitant]
     Active Substance: ERGOCALCIFEROL
  23. TOPAMAX [Concomitant]
     Active Substance: TOPIRAMATE
  24. VITAMIN B12 [Concomitant]
     Active Substance: CYANOCOBALAMIN
  25. MIRAPEX [Concomitant]
     Active Substance: PRAMIPEXOLE DIHYDROCHLORIDE
  26. GABAPENTIN. [Concomitant]
     Active Substance: GABAPENTIN
  27. LISINOPRIL. [Concomitant]
     Active Substance: LISINOPRIL
  28. LORAZEPAM. [Concomitant]
     Active Substance: LORAZEPAM
  29. NAPROXEN. [Concomitant]
     Active Substance: NAPROXEN
  30. NIFEREX (FERROGLYCINE SULFATE) [Concomitant]
     Active Substance: FERROGLYCINE SULFATE
  31. VITAMIN D2 [Concomitant]
     Active Substance: ERGOCALCIFEROL
  32. LYRICA [Concomitant]
     Active Substance: PREGABALIN
  33. METFORMIN HCL [Concomitant]
     Active Substance: METFORMIN HYDROCHLORIDE
  34. PROTONIX                           /00661201/ [Concomitant]
     Active Substance: OMEPRAZOLE
  35. TREXIMET [Concomitant]
     Active Substance: NAPROXEN SODIUM\SUMATRIPTAN SUCCINATE

REACTIONS (4)
  - Drug effect increased [Unknown]
  - Nausea [Unknown]
  - Drug dose omission [Unknown]
  - Somnolence [Unknown]

NARRATIVE: CASE EVENT DATE: 20170507
